FAERS Safety Report 6764399-3 (Version None)
Quarter: 2010Q2

REPORT INFORMATION
  Report Type: 
  Country: None (occurrence: None)
  Receive Date: 20100610
  Receipt Date: 20100601
  Transmission Date: 20101027
  Serious: Yes (Hospitalization, Other)
  Sender: FDA-Public Use
  Company Number: US-ELI_LILLY_AND_COMPANY-US201001003750

PATIENT
  Sex: Male
  Weight: 106 kg

DRUGS (7)
  1. EFFIENT [Suspect]
     Indication: ACUTE MYOCARDIAL INFARCTION
     Dosage: LOADING DOSE
     Dates: start: 20100101
  2. EFFIENT [Suspect]
     Dosage: 10 MG, DAILY (1/D)
  3. ASPIRIN [Concomitant]
     Dosage: 325 D/F, DAILY (1/D)
  4. COREG [Concomitant]
     Dosage: 12.5 MG, 2/D
     Route: 048
  5. ZESTRIL [Concomitant]
     Dosage: 10 MG, DAILY (1/D)
     Route: 048
  6. PRAVACHOL [Concomitant]
     Dosage: 20 MG, EACH EVENING
     Route: 048
  7. NITROGLYCERIN [Concomitant]
     Route: 060

REACTIONS (7)
  - ANXIETY [None]
  - AUTOIMMUNE NEUTROPENIA [None]
  - DEEP VEIN THROMBOSIS [None]
  - MONOCYTOSIS [None]
  - PULMONARY EMBOLISM [None]
  - THROMBOPHLEBITIS [None]
  - VASCULAR PSEUDOANEURYSM [None]
